FAERS Safety Report 7004628-4 (Version None)
Quarter: 2010Q3

REPORT INFORMATION
  Report Type: 
  Country: None (occurrence: None)
  Receive Date: 20100921
  Receipt Date: 20100914
  Transmission Date: 20110219
  Serious: Yes (Hospitalization, Other)
  Sender: FDA-Public Use
  Company Number: US-ASTRAZENECA-2006UW03808

PATIENT
  Age: 177 Month
  Sex: Female
  Weight: 68 kg

DRUGS (10)
  1. SEROQUEL [Suspect]
     Indication: BIPOLAR DISORDER
     Dosage: 25-100 MG
     Route: 048
     Dates: start: 20000713, end: 20000801
  2. ZYPREXA [Suspect]
     Indication: BIPOLAR DISORDER
     Route: 048
     Dates: start: 20000901, end: 20001201
  3. RISPERDAL [Concomitant]
     Indication: BIPOLAR DISORDER
     Dates: start: 20001201, end: 20001201
  4. RISPERDAL [Concomitant]
     Dates: start: 20001201, end: 20010101
  5. ABILIFY [Concomitant]
     Dates: start: 20040101, end: 20040201
  6. DEPAKOTE [Concomitant]
  7. NEURONTIN [Concomitant]
  8. ZOLOFT [Concomitant]
  9. PAXIL [Concomitant]
  10. LITHIUM [Concomitant]

REACTIONS (7)
  - BLOOD CHOLESTEROL INCREASED [None]
  - DIABETES MELLITUS [None]
  - DIABETIC COMA [None]
  - DIABETIC KETOACIDOSIS [None]
  - HYPERLIPIDAEMIA [None]
  - NEUROPATHY PERIPHERAL [None]
  - TYPE 1 DIABETES MELLITUS [None]
